FAERS Safety Report 7492852-6 (Version None)
Quarter: 2011Q2

REPORT INFORMATION
  Report Type: 
  Country: None (occurrence: None)
  Receive Date: 20110520
  Receipt Date: 20110506
  Transmission Date: 20111010
  Serious: Yes (Other)
  Sender: FDA-Public Use
  Company Number: FR-RANBAXY-2011RR-44368

PATIENT
  Age: 25 Year
  Sex: Male

DRUGS (2)
  1. MEMANTINE [Suspect]
     Indication: AMNESIA
  2. DONEPEZIL [Suspect]
     Indication: MEMORY IMPAIRMENT
     Dosage: 10 MG, UNK

REACTIONS (1)
  - VENTRICULAR FIBRILLATION [None]
